FAERS Safety Report 4447695-4 (Version None)
Quarter: 2004Q3

REPORT INFORMATION
  Report Type: 
  Country: None (occurrence: None)
  Receive Date: 20040802
  Receipt Date: 20040415
  Transmission Date: 20050211
  Serious: No
  Sender: FDA-Public Use
  Company Number: 2004-115284-NL

PATIENT
  Sex: Female

DRUGS (1)
  1. NUVARING [Suspect]
     Dosage: DF DAILY

REACTIONS (4)
  - BREAST TENDERNESS [None]
  - DEVICE FAILURE [None]
  - MUSCLE CRAMP [None]
  - VULVOVAGINAL DISCOMFORT [None]
